FAERS Safety Report 10281305 (Version 2)
Quarter: 2014Q3

REPORT INFORMATION
  Report Type: Spontaneous
  Country: US (occurrence: US)
  Receive Date: 20140707
  Receipt Date: 20140707
  Transmission Date: 20150326
  Serious: Yes (Other)
  Sender: FDA-Public Use
  Company Number: US-AMGEN-USASP2014042154

PATIENT
  Age: 57 Year
  Sex: Female

DRUGS (2)
  1. DELENTIN [Concomitant]
     Indication: EPILEPSY
     Dosage: UNK
     Route: 048
  2. ENBREL [Suspect]
     Active Substance: ETANERCEPT
     Indication: PSORIASIS
     Dosage: 50 MG, QWK
     Route: 058
     Dates: start: 20130608

REACTIONS (3)
  - Pharyngitis streptococcal [Recovered/Resolved]
  - Rash papular [Not Recovered/Not Resolved]
  - Psoriasis [Recovered/Resolved]

NARRATIVE: CASE EVENT DATE: 201404
